FAERS Safety Report 9279512 (Version 1)
Quarter: 2013Q2

REPORT INFORMATION
  Report Type: Spontaneous
  Country: FR (occurrence: FR)
  Receive Date: 20130508
  Receipt Date: 20130508
  Transmission Date: 20140414
  Serious: Yes (Other)
  Sender: FDA-Public Use
  Company Number: FR-ROCHE-1219650

PATIENT
  Age: 70 Year
  Sex: Female

DRUGS (5)
  1. RIVOTRIL [Suspect]
     Indication: EPILEPSY
     Route: 048
     Dates: start: 20120309
  2. TEGRETOL LP [Interacting]
     Indication: EPILEPSY
     Route: 048
  3. MODOPAR [Concomitant]
     Route: 048
  4. ROCEPHINE [Concomitant]
     Route: 042
     Dates: start: 20120312
  5. LAMICTAL [Concomitant]
     Route: 048

REACTIONS (3)
  - Epilepsy [Recovered/Resolved]
  - Overdose [Unknown]
  - Drug interaction [Unknown]
